FAERS Safety Report 25442098 (Version 1)
Quarter: 2025Q2

REPORT INFORMATION
  Report Type: Spontaneous
  Country: US (occurrence: US)
  Receive Date: 20250616
  Receipt Date: 20250616
  Transmission Date: 20250717
  Serious: No
  Sender: DAIICHI
  Company Number: US-DAIICHI SANKYO, INC.-DS-2025-132005-USAA

PATIENT
  Sex: Female

DRUGS (15)
  1. TURALIO [Suspect]
     Active Substance: PEXIDARTINIB HYDROCHLORIDE
     Indication: Connective tissue neoplasm
     Dosage: 250 MG (125MG X 2 - AM + PM), BID
     Route: 048
     Dates: start: 20250226
  2. TURALIO [Suspect]
     Active Substance: PEXIDARTINIB HYDROCHLORIDE
     Indication: Soft tissue neoplasm
  3. LEVOTHYROXINE [Concomitant]
     Active Substance: LEVOTHYROXINE
     Indication: Product used for unknown indication
     Dosage: 75 UG, QD
     Route: 065
  4. NALTREXONE [Concomitant]
     Active Substance: NALTREXONE
     Indication: Product used for unknown indication
     Dosage: 3 MG, QD (CAP 1 TABLET DAILY)
     Route: 065
  5. VITAMIN D3 [Concomitant]
     Active Substance: CHOLECALCIFEROL
     Indication: Product used for unknown indication
     Dosage: 125 UG, QD
     Route: 065
  6. ZEN - GABA [Concomitant]
     Indication: Product used for unknown indication
     Route: 065
  7. ESTRO BALANCE [Concomitant]
     Indication: Product used for unknown indication
     Dosage: 2 DOSAGE FORM, QD
     Route: 065
  8. GlUCO IR NUTRIDYN [Concomitant]
     Indication: Product used for unknown indication
     Dosage: 6 DOSAGE FORM, QD
     Route: 065
  9. IMMUGUMMIES (Young Living - elderflower) [Concomitant]
     Indication: Product used for unknown indication
     Dosage: 2 DOSAGE FORM, QD
     Route: 065
  10. MAGNESIUM / VIESIUM [Concomitant]
     Indication: Product used for unknown indication
     Dosage: 2 DOSAGE FORM, QD
  11. VIOLET [Concomitant]
     Indication: Product used for unknown indication
     Dosage: 1 DOSAGE FORM, QD
     Route: 065
  12. SACCHAROMYCES CEREVISIAE [Concomitant]
     Active Substance: SACCHAROMYCES CEREVISIAE
     Indication: Product used for unknown indication
     Dosage: 1 DOSAGE FORM, QD
     Route: 065
  13. NOW 5-HTP [Concomitant]
     Indication: Product used for unknown indication
     Dosage: 100 MG, TID
     Route: 065
  14. FEMMENESSENCE MACAPAUSE [Concomitant]
     Indication: Product used for unknown indication
     Route: 065
  15. COLLAGEN MARINE [Concomitant]
     Indication: Product used for unknown indication
     Route: 065

REACTIONS (5)
  - White blood cell count decreased [Unknown]
  - Nausea [Not Recovered/Not Resolved]
  - Vomiting [Not Recovered/Not Resolved]
  - Hair colour changes [Not Recovered/Not Resolved]
  - Eyelash discolouration [Not Recovered/Not Resolved]
